FAERS Safety Report 13890471 (Version 2)
Quarter: 2017Q3

REPORT INFORMATION
  Report Type: Report from Study
  Country: None (occurrence: IE)
  Receive Date: 20170822
  Receipt Date: 20170830
  Transmission Date: 20171127
  Serious: Yes (Hospitalization, Other)
  Sender: FDA-Public Use
  Company Number: IE-ABBVIE-17P-229-1906016-00

PATIENT
  Age: 78 Year
  Sex: Female

DRUGS (12)
  1. DUODOPA [Suspect]
     Active Substance: CARBIDOPA\LEVODOPA
     Dosage: 1 CASSETTE,CONTINUOUS,2-10ML OP MANE,0.4-4ML/HR(HOURLY),0.2-2ML HOURLY AS REQUIRED
     Route: 050
     Dates: start: 20170228
  2. DUODOPA [Suspect]
     Active Substance: CARBIDOPA\LEVODOPA
     Indication: PARKINSON^S DISEASE
     Dosage: 1 CASSETTE, CONTINUOUS
     Route: 050
     Dates: start: 20170221, end: 20170228
  3. PLAVIX [Concomitant]
     Active Substance: CLOPIDOGREL BISULFATE
     Indication: PRODUCT USED FOR UNKNOWN INDICATION
     Route: 048
  4. MIRAPEXIN [Concomitant]
     Active Substance: PRAMIPEXOLE
     Indication: PRODUCT USED FOR UNKNOWN INDICATION
     Dosage: 3
     Route: 048
  5. CLONAZEPAM. [Concomitant]
     Active Substance: CLONAZEPAM
     Indication: PRODUCT USED FOR UNKNOWN INDICATION
     Dosage: NIGHT
     Route: 048
  6. PROCAL SACHET [Concomitant]
     Indication: PRODUCT USED FOR UNKNOWN INDICATION
     Route: 048
  7. AMITRIPTYLINE [Concomitant]
     Active Substance: AMITRIPTYLINE
     Indication: PRODUCT USED FOR UNKNOWN INDICATION
     Dosage: NIGHT
     Route: 048
  8. ASPIRIN. [Concomitant]
     Active Substance: ASPIRIN
     Indication: PRODUCT USED FOR UNKNOWN INDICATION
     Route: 048
  9. LANSOPRAZOLE. [Concomitant]
     Active Substance: LANSOPRAZOLE
     Indication: PRODUCT USED FOR UNKNOWN INDICATION
     Route: 048
  10. CALCICHEW D3 [Concomitant]
     Active Substance: CALCIUM\CHOLECALCIFEROL
     Indication: PRODUCT USED FOR UNKNOWN INDICATION
     Route: 048
  11. APIXABAN [Concomitant]
     Active Substance: APIXABAN
     Indication: PRODUCT USED FOR UNKNOWN INDICATION
     Route: 048
  12. AZILECT [Concomitant]
     Active Substance: RASAGILINE MESYLATE
     Indication: PRODUCT USED FOR UNKNOWN INDICATION
     Route: 048

REACTIONS (6)
  - Constipation [Recovered/Resolved]
  - Dyskinesia [Not Recovered/Not Resolved]
  - On and off phenomenon [Not Recovered/Not Resolved]
  - Hallucination, visual [Unknown]
  - Mobility decreased [Unknown]
  - Faecaloma [Recovered/Resolved]

NARRATIVE: CASE EVENT DATE: 20170303
